FAERS Safety Report 8764390 (Version 1)
Quarter: 2012Q4

REPORT INFORMATION
  Report Type: 
  Country: FR (occurrence: FR)
  Receive Date: 20120831
  Receipt Date: 20120831
  Transmission Date: 20130627
  Serious: Yes (Hospitalization, Other)
  Sender: FDA-Public Use
  Company Number: PHHY2012FR075197

PATIENT
  Sex: Female

DRUGS (1)
  1. TEGRETOL [Suspect]
     Dosage: 5 DF, UNK
     Route: 048

REACTIONS (6)
  - Transient ischaemic attack [Unknown]
  - Diplegia [Unknown]
  - Extensor plantar response [Unknown]
  - Vomiting [Unknown]
  - Paroxysmal arrhythmia [Unknown]
  - Medication error [Unknown]
